FAERS Safety Report 9204817 (Version 1)
Quarter: 2013Q1

REPORT INFORMATION
  Report Type: Spontaneous
  Country: US (occurrence: None)
  Receive Date: 20130329
  Receipt Date: 20130329
  Transmission Date: 20140127
  Serious: Yes (Hospitalization, Other)
  Sender: FDA-Public Use
  Company Number: 2013P1003607

PATIENT
  Sex: Female

DRUGS (1)
  1. PHENOBARBITAL [Suspect]
     Indication: CONVULSION

REACTIONS (1)
  - Drug ineffective [None]
